FAERS Safety Report 4735405-2 (Version None)
Quarter: 2005Q3

REPORT INFORMATION
  Report Type: 
  Country: None (occurrence: None)
  Receive Date: 20050803
  Receipt Date: 20050803
  Transmission Date: 20060218
  Serious: Yes (Hospitalization)
  Sender: FDA-Public Use
  Company Number: None

PATIENT
  Age: 65 Year
  Sex: Male
  Weight: 99 kg

DRUGS (6)
  1. 5-FU (400MG/M2) EVERY OTHER WEEK [Suspect]
     Indication: COLON CANCER METASTATIC
     Dosage: 400 IV BOLUS
     Route: 040
     Dates: start: 20050216, end: 20050401
  2. LEUCOVORIN 400MG/M2 EVERY OTHER WEEK [Suspect]
     Indication: COLON CANCER METASTATIC
     Dosage: 400 IV BOLUS
     Route: 040
     Dates: start: 20050216, end: 20050401
  3. ERLOTINIB [Suspect]
     Indication: COLON CANCER METASTATIC
     Dosage: 150MG QD PO
     Route: 048
     Dates: start: 20050216, end: 20050330
  4. 5-FU (1200MG/M2) OVER 46 HOUR CONTINUOUS INFUSION ) EVERY OTHER WEEK [Suspect]
     Indication: COLON CANCER METASTATIC
     Dosage: 1200 CI-IV
     Route: 042
     Dates: start: 20050216, end: 20050401
  5. OXALIPLATIN [Suspect]
     Indication: COLON CANCER METASTATIC
     Dosage: 85 IV
     Route: 042
     Dates: start: 20050216, end: 20050330
  6. BEVACIZUMAB (5MG/KG) [Suspect]
     Indication: COLON CANCER METASTATIC
     Dosage: 5MG/KG IV
     Route: 042
     Dates: start: 20050216, end: 20050330

REACTIONS (5)
  - ADHESION [None]
  - FLATULENCE [None]
  - INTESTINAL OBSTRUCTION [None]
  - SYNCOPE [None]
  - WHITE BLOOD CELL COUNT INCREASED [None]
